FAERS Safety Report 4482040-X (Version None)
Quarter: 2004Q4

REPORT INFORMATION
  Report Type: 
  Country: None (occurrence: None)
  Receive Date: 20041020
  Receipt Date: 20041006
  Transmission Date: 20050328
  Serious: Yes (Death)
  Sender: FDA-Public Use
  Company Number: GBS040915659

PATIENT
  Age: 26 Year
  Sex: Male

DRUGS (2)
  1. ZYPREXA [Suspect]
     Indication: SCHIZOPHRENIA
     Dosage: 15 MG DAY
     Dates: start: 20040101
  2. DEPIXOL (FLUPENTIXOL DECANOATE) [Concomitant]

REACTIONS (3)
  - ATHEROSCLEROSIS [None]
  - COMPLETED SUICIDE [None]
  - INJURY ASPHYXIATION [None]
